FAERS Safety Report 7211123-6 (Version None)
Quarter: 2010Q4

REPORT INFORMATION
  Report Type: 
  Country: None (occurrence: None)
  Receive Date: 20101223
  Receipt Date: 20101213
  Transmission Date: 20110411
  Serious: Yes (Hospitalization)
  Sender: FDA-Public Use
  Company Number: CIP10003108

PATIENT
  Age: 73 Year
  Sex: Male

DRUGS (10)
  1. ASACOL [Suspect]
     Indication: COLITIS ULCERATIVE
     Dosage: ORAL
     Route: 048
  2. PROPAFENONE HCL [Suspect]
  3. RANITIDINE [Concomitant]
  4. OMEPRAZOLE [Concomitant]
  5. METFORMIN HCL [Concomitant]
  6. ROSIGLITAZONE [Concomitant]
  7. LANTUS /01483501/ (INSULIN GLARGINE) [Concomitant]
  8. LEVOTHYROXINE SODIUM [Concomitant]
  9. WARFARIN (WARFARIN) [Concomitant]
  10. ITRACONAZOLE [Concomitant]

REACTIONS (7)
  - ABDOMINAL PAIN [None]
  - BACTERIAL SEPSIS [None]
  - BLOOD CULTURE POSITIVE [None]
  - FATIGUE [None]
  - NEUTROPENIA [None]
  - PSEUDOMONAS INFECTION [None]
  - PYREXIA [None]
